FAERS Safety Report 8687621 (Version 4)
Quarter: 2012Q4

REPORT INFORMATION
  Report Type: Report from Study
  Country: TW (occurrence: TW)
  Receive Date: 20120727
  Receipt Date: 20120911
  Transmission Date: 20130627
  Serious: Yes (Death, Hospitalization)
  Sender: FDA-Public Use
  Company Number: TW-PFIZER INC-2012177749

PATIENT
  Age: 60 Year
  Sex: Male
  Weight: 49.2 kg

DRUGS (9)
  1. SORAFENIB TOSILATE [Suspect]
     Indication: METASTATIC RENAL CELL CARCINOMA
     Dosage: 400 mg, 2x/day
     Dates: start: 20110302, end: 20120224
  2. ATORVASTATIN CALCIUM [Suspect]
     Indication: HYPERLIPIDAEMIA
     Dosage: 10 mg, 2x/day
     Route: 048
     Dates: start: 20120529, end: 20120712
  3. EVEROLIMUS [Suspect]
     Indication: RENAL CANCER METASTATIC
     Dosage: 10 mg, 1x/day
     Route: 048
     Dates: start: 20120224, end: 20120712
  4. NORVASC [Concomitant]
     Indication: HYPERTENSION
     Dosage: 5 mg, 1x/day
     Route: 048
     Dates: start: 20080815, end: 20120713
  5. NYSTATIN [Concomitant]
     Indication: MUCOSAL INFLAMMATION
     Dosage: 500000 IU, 4x/day
     Route: 048
     Dates: start: 20120529, end: 20120712
  6. REPAGLINIDE [Concomitant]
     Indication: PROPHYLAXIS
     Dosage: 1 mg, 3x/day
     Route: 048
     Dates: start: 20120626, end: 20120629
  7. METFORMIN [Concomitant]
     Indication: PROPHYLAXIS
     Dosage: 500 mg, 1x/day
     Route: 048
     Dates: start: 20120710, end: 20120713
  8. ACETYLCYSTEINE [Concomitant]
     Indication: COUGH
     Dosage: 1 DF, TID
     Route: 048
     Dates: start: 20120710, end: 20120713
  9. PREDNISOLONE [Concomitant]
     Indication: DECREASED APPETITE
     Dosage: 5 mg, 2x/day
     Route: 048
     Dates: start: 20120710, end: 20120712

REACTIONS (1)
  - Acute hepatitis B [Fatal]
